FAERS Safety Report 5688586-0 (Version None)
Quarter: 2008Q1

REPORT INFORMATION
  Report Type: 
  Country: None (occurrence: None)
  Receive Date: 20080331
  Receipt Date: 20080319
  Transmission Date: 20080703
  Serious: Yes (Hospitalization)
  Sender: FDA-Public Use
  Company Number: PHHY2008JP03620

PATIENT
  Age: 80 Year
  Sex: Female

DRUGS (3)
  1. NEORAL [Suspect]
     Indication: PEMPHIGOID
     Dosage: 325 MG/ DAY
     Route: 048
     Dates: start: 20080101, end: 20080225
  2. DRUG THERAPY NOS [Concomitant]
     Indication: PEMPHIGOID
     Dosage: 5 MG/DAY
     Dates: start: 20070101
  3. DRUG THERAPY NOS [Concomitant]
     Dosage: 10 MG/DAY

REACTIONS (2)
  - GAIT DISTURBANCE [None]
  - HEPATIC FUNCTION ABNORMAL [None]
